FAERS Safety Report 8113112-6 (Version None)
Quarter: 2012Q1

REPORT INFORMATION
  Report Type: 
  Country: None (occurrence: None)
  Receive Date: 20120203
  Receipt Date: 20120131
  Transmission Date: 20120608
  Serious: Yes (Death)
  Sender: FDA-Public Use
  Company Number: NO-EISAI INC-E2020-10292-SPO-NO

PATIENT
  Age: 89 Year
  Sex: Female

DRUGS (1)
  1. DONEPEZIL HCL [Suspect]
     Dosage: UNKNOWN
     Route: 048

REACTIONS (1)
  - THROMBOCYTOPENIA [None]
